FAERS Safety Report 18800503 (Version 1)
Quarter: 2021Q1

REPORT INFORMATION
  Report Type: Spontaneous
  Country: IT (occurrence: IT)
  Receive Date: 20210128
  Receipt Date: 20210128
  Transmission Date: 20210419
  Serious: Yes (Hospitalization)
  Sender: FDA-Public Use
  Company Number: IT-ASTRAZENECA-2021A015436

PATIENT
  Age: 73 Year
  Sex: Male

DRUGS (8)
  1. TORVAST [Concomitant]
     Active Substance: ATORVASTATIN
  2. CIPROXIN [Concomitant]
     Active Substance: CIPROFLOXACIN
  3. ZETIA [Concomitant]
     Active Substance: EZETIMIBE
  4. PANTORC [Concomitant]
     Active Substance: PANTOPRAZOLE SODIUM
  5. CARDURA [Concomitant]
     Active Substance: DOXAZOSIN MESYLATE
  6. BRILIQUE [Suspect]
     Active Substance: TICAGRELOR
     Indication: PLATELET AGGREGATION INHIBITION
     Route: 048
     Dates: start: 20150101, end: 20210106
  7. CARDIOASPIRIN [Suspect]
     Active Substance: ASPIRIN
     Indication: PLATELET AGGREGATION INHIBITION
     Route: 048
     Dates: start: 20150101, end: 20210106
  8. LASIX AMPOULES [Concomitant]

REACTIONS (4)
  - Anaemia [Recovering/Resolving]
  - Haematemesis [Recovering/Resolving]
  - Gastric ulcer [Recovering/Resolving]
  - Melaena [Recovering/Resolving]

NARRATIVE: CASE EVENT DATE: 20210106
